FAERS Safety Report 4413422-X (Version None)
Quarter: 2004Q3

REPORT INFORMATION
  Report Type: 
  Country: None (occurrence: None)
  Receive Date: 20040728
  Receipt Date: 20040719
  Transmission Date: 20050211
  Serious: No
  Sender: FDA-Public Use
  Company Number: 04H-163-0267491-00

PATIENT
  Age: 8 Year
  Sex: Male
  Weight: 27 kg

DRUGS (7)
  1. SUCCINYLCHOLINE CHLORIDE [Suspect]
     Indication: LARYNGOSPASM
     Dosage: 20 MG, ONCE, INTRAVENOUS; INTRAOPERATIVELY
     Route: 042
  2. PETHIDINE HYDROCHLORIDE [Concomitant]
  3. ATROPINE [Concomitant]
  4. PENTOBARBITAL CAP [Concomitant]
  5. THIOPENTAL SODIUM [Concomitant]
  6. HALOTHANE [Concomitant]
  7. OXYGEN [Concomitant]

REACTIONS (10)
  - ASPARTATE AMINOTRANSFERASE INCREASED [None]
  - BLOOD CREATINE PHOSPHOKINASE INCREASED [None]
  - BLOOD GASES ABNORMAL [None]
  - BLOOD LACTATE DEHYDROGENASE INCREASED [None]
  - HYPERTHERMIA MALIGNANT [None]
  - JOINT STIFFNESS [None]
  - METABOLIC ACIDOSIS [None]
  - RESPIRATORY ACIDOSIS [None]
  - TACHYCARDIA [None]
  - VENTRICULAR EXTRASYSTOLES [None]
